FAERS Safety Report 7758347-7 (Version None)
Quarter: 2011Q3

REPORT INFORMATION
  Report Type: 
  Country: None (occurrence: None)
  Receive Date: 20110825
  Receipt Date: 20110721
  Transmission Date: 20111222
  Serious: Yes (Hospitalization)
  Sender: FDA-Public Use
  Company Number: 331616

PATIENT
  Age: 41 Year
  Sex: Female
  Weight: 156.9 kg

DRUGS (11)
  1. METFORMIN HCL [Concomitant]
  2. ULTRAM [Concomitant]
  3. CLARITIN /00413701/ [Concomitant]
  4. LISINOPRIL [Concomitant]
  5. TRILIPIX [Concomitant]
  6. XANAX [Concomitant]
  7. MOTRIN [Concomitant]
  8. VICTOZA [Suspect]
     Indication: OBESITY
     Dosage: 0.6 MG, QD, SUBCUTANEOUS
     Route: 058
     Dates: start: 20110602, end: 20110623
  9. VICTOZA [Suspect]
     Indication: TYPE 2 DIABETES MELLITUS
     Dosage: 0.6 MG, QD, SUBCUTANEOUS
     Route: 058
     Dates: start: 20110602, end: 20110623
  10. HYDROCHLOROTHIAZIDE [Concomitant]
  11. ERGOCALCIFEROL [Concomitant]

REACTIONS (1)
  - PANCREATITIS ACUTE [None]
